FAERS Safety Report 5802037-4 (Version None)
Quarter: 2008Q3

REPORT INFORMATION
  Report Type: 
  Country: None (occurrence: None)
  Receive Date: 20080707
  Receipt Date: 20080625
  Transmission Date: 20090109
  Serious: Yes (Death, Other)
  Sender: FDA-Public Use
  Company Number: JP-PFIZER INC-2008051420

PATIENT
  Age: 74 Year
  Sex: Male

DRUGS (1)
  1. ZYVOX [Suspect]

REACTIONS (3)
  - ANAEMIA [None]
  - NEOPLASM MALIGNANT [None]
  - PLATELET COUNT DECREASED [None]
